FAERS Safety Report 9255091 (Version 2)
Quarter: 2013Q2

REPORT INFORMATION
  Report Type: Spontaneous
  Country: US (occurrence: US)
  Receive Date: 20130425
  Receipt Date: 20130516
  Transmission Date: 20140414
  Serious: No
  Sender: FDA-Public Use
  Company Number: US-009507513-1304USA007466

PATIENT
  Age: 62 Year
  Sex: Male

DRUGS (8)
  1. VICTRELIS [Suspect]
     Indication: HEPATITIS C
     Dosage: 4 CAPSULES (800) MG, TID (EVERY 7-9 H) START ON WEEK 5
     Route: 048
  2. PEGASYS [Suspect]
     Route: 058
  3. RIBAPAK [Suspect]
     Dosage: 1200, QD
     Route: 048
  4. XANAX [Concomitant]
     Dosage: 2 MG, UNK
     Route: 048
  5. AMBIEN [Concomitant]
     Dosage: 10 MG, UNK
     Route: 048
  6. NORVASC [Concomitant]
     Route: 048
  7. VITAMINS (UNSPECIFIED) [Concomitant]
     Route: 048
  8. ASPIRIN [Concomitant]
     Dosage: 81 MG, UNK
     Route: 048

REACTIONS (4)
  - Blood iron increased [Unknown]
  - Fatigue [Unknown]
  - Rash [Unknown]
  - Nausea [Unknown]
